FAERS Safety Report 9555206 (Version 2)
Quarter: 2013Q4

REPORT INFORMATION
  Report Type: Spontaneous
  Country: US (occurrence: None)
  Receive Date: 20130821
  Receipt Date: 20131120
  Transmission Date: 20140711
  Serious: Yes (Hospitalization, Other)
  Sender: FDA-Public Use
  Company Number: 2013-002250

PATIENT
  Age: 37 Year
  Sex: Female
  Weight: 88 kg

DRUGS (3)
  1. LO LOESTRIN FE (NORETHINDRONE ACETAT, ETHINYLESTRADIOL, FERROUS FUMARATE) TABLET, 1000/10UG [Suspect]
     Indication: CONTRACEPTION
     Dosage: UNK, ORAL
     Route: 048
     Dates: start: 20130326, end: 20130616
  2. TOPROL (METOPROLOL SUCCINATE) [Concomitant]
  3. METFORMIN (METFORMIN) [Concomitant]

REACTIONS (3)
  - Pulmonary embolism [None]
  - Dyspnoea [None]
  - Chest pain [None]
